FAERS Safety Report 5999095-3 (Version None)
Quarter: 2008Q4

REPORT INFORMATION
  Report Type: 
  Country: None (occurrence: None)
  Receive Date: 20081215
  Receipt Date: 20081205
  Transmission Date: 20090506
  Serious: Yes (Hospitalization)
  Sender: FDA-Public Use
  Company Number: CH-JNJFOC-20081201401

PATIENT
  Age: 63 Year
  Sex: Male

DRUGS (12)
  1. DURAGESIC-100 [Suspect]
     Route: 062
  2. DURAGESIC-100 [Suspect]
     Indication: DRUG USE FOR UNKNOWN INDICATION
     Route: 062
  3. EFFEXOR [Interacting]
     Indication: DEPRESSION
     Route: 048
  4. EFFEXOR [Interacting]
     Indication: ANXIETY
     Route: 048
  5. METRONIDAZOLE [Concomitant]
     Route: 065
  6. GARAMYCINE [Concomitant]
     Route: 065
  7. ISOFLURAN [Concomitant]
     Route: 065
  8. PROPOFOL [Concomitant]
     Route: 065
  9. MIDAZOLAM HCL [Concomitant]
     Route: 065
  10. SUFENTANIL CITRATE [Concomitant]
     Route: 065
  11. CEFAZOLIN [Concomitant]
     Route: 065
  12. LACTATED RINGER'S [Concomitant]
     Route: 065

REACTIONS (6)
  - BLOOD CREATINE PHOSPHOKINASE INCREASED [None]
  - DRUG INTERACTION [None]
  - HYPERREFLEXIA [None]
  - MYOCLONUS [None]
  - PYREXIA [None]
  - SEROTONIN SYNDROME [None]
